FAERS Safety Report 7520183-4 (Version None)
Quarter: 2011Q2

REPORT INFORMATION
  Report Type: 
  Country: None (occurrence: None)
  Receive Date: 20110602
  Receipt Date: 20110210
  Transmission Date: 20111010
  Serious: No
  Sender: FDA-Public Use
  Company Number: US-BAYER-2011-043333

PATIENT
  Age: 21 Year
  Sex: Female
  Weight: 43 kg

DRUGS (1)
  1. ALEVE [Suspect]
     Dosage: 2 DF, ONCE
     Route: 048
     Dates: start: 20110210

REACTIONS (2)
  - RASH PAPULAR [None]
  - PRURITUS [None]
